FAERS Safety Report 7518026-8 (Version None)
Quarter: 2011Q2

REPORT INFORMATION
  Report Type: 
  Country: None (occurrence: None)
  Receive Date: 20110523
  Receipt Date: 20110509
  Transmission Date: 20111010
  Serious: Yes (Disabling, Other)
  Sender: FDA-Public Use
  Company Number: 2011MA005598

PATIENT
  Age: 63 Year
  Sex: Male

DRUGS (1)
  1. AMANTADINE HCL [Suspect]
     Indication: PRURITUS

REACTIONS (3)
  - TOXICITY TO VARIOUS AGENTS [None]
  - HALLUCINATION, VISUAL [None]
  - ENCEPHALOPATHY [None]
